FAERS Safety Report 26097673 (Version 1)
Quarter: 2025Q4

REPORT INFORMATION
  Report Type: Spontaneous
  Country: US (occurrence: US)
  Receive Date: 20251127
  Receipt Date: 20251127
  Transmission Date: 20260118
  Serious: No
  Sender: ABBVIE
  Company Number: US-ABBVIE-6563759

PATIENT
  Age: 78 Year
  Sex: Male

DRUGS (1)
  1. VYALEV [Suspect]
     Active Substance: FOSCARBIDOPA\FOSLEVODOPA
     Indication: Parkinson^s disease
     Route: 058
     Dates: start: 202511, end: 202511

REACTIONS (3)
  - Confusional state [Recovered/Resolved]
  - Somnolence [Recovered/Resolved]
  - Bladder disorder [Recovered/Resolved]

NARRATIVE: CASE EVENT DATE: 20251101
